FAERS Safety Report 4839706-9 (Version None)
Quarter: 2005Q4

REPORT INFORMATION
  Report Type: 
  Country: None (occurrence: None)
  Receive Date: 20051129
  Receipt Date: 20050627
  Transmission Date: 20060501
  Serious: No
  Sender: FDA-Public Use
  Company Number: US-GLAXOSMITHKLINE-A0564322A

PATIENT
  Age: 50 Year
  Sex: Female

DRUGS (8)
  1. WELLBUTRIN SR [Suspect]
     Indication: DEPRESSION
     Dosage: 150MG TWICE PER DAY
     Route: 048
  2. TRIAMTERENE [Concomitant]
  3. TOPAMAX [Concomitant]
  4. KEPPRA [Concomitant]
  5. ATENOLOL [Concomitant]
  6. NEXIUM [Concomitant]
  7. PROMETRIUM [Concomitant]
  8. ESTRACE [Concomitant]

REACTIONS (2)
  - ANOREXIA [None]
  - HEADACHE [None]
